FAERS Safety Report 6418915-1 (Version None)
Quarter: 2009Q4

REPORT INFORMATION
  Report Type: 
  Country: None (occurrence: None)
  Receive Date: 20091028
  Receipt Date: 20091028
  Transmission Date: 20100525
  Serious: No
  Sender: FDA-Public Use
  Company Number: None

PATIENT
  Age: 53 Year
  Sex: Male

DRUGS (1)
  1. MAGNESIUM OXIDE [Suspect]
     Dosage: 420 MG BID PO
     Route: 048
     Dates: start: 20091013

REACTIONS (2)
  - AXILLARY PAIN [None]
  - FATIGUE [None]
